FAERS Safety Report 14262748 (Version 1)
Quarter: 2017Q4

REPORT INFORMATION
  Report Type: Spontaneous
  Country: US (occurrence: US)
  Receive Date: 20171208
  Receipt Date: 20171208
  Transmission Date: 20180321
  Serious: No
  Sender: FDA-Public Use
  Company Number: US-PERRIGO-17US025744

PATIENT
  Age: 65 Year
  Sex: Male
  Weight: 90.7 kg

DRUGS (4)
  1. CIMETIDINE [Suspect]
     Active Substance: CIMETIDINE
     Dosage: 200 MG, QD
     Route: 048
     Dates: start: 201707, end: 201707
  2. PRAVASTATIN. [Concomitant]
     Active Substance: PRAVASTATIN
     Indication: BLOOD CHOLESTEROL INCREASED
     Dosage: UNK
     Route: 048
  3. CIMETIDINE [Suspect]
     Active Substance: CIMETIDINE
     Indication: DYSPEPSIA
     Dosage: 200 MG, QD
     Route: 048
     Dates: start: 201705, end: 201705
  4. LISINOPRIL. [Concomitant]
     Active Substance: LISINOPRIL
     Indication: HYPERTENSION
     Dosage: UNK
     Route: 048

REACTIONS (1)
  - Drug ineffective [Unknown]

NARRATIVE: CASE EVENT DATE: 201705
